FAERS Safety Report 19105316 (Version 2)
Quarter: 2021Q2

REPORT INFORMATION
  Report Type: Report from Study
  Country: US (occurrence: US)
  Receive Date: 20210408
  Receipt Date: 20210615
  Transmission Date: 20210717
  Serious: Yes (Other)
  Sender: FDA-Public Use
  Company Number: US-ROCHE-2802899

PATIENT
  Age: 34 Year
  Sex: Male
  Weight: 77.5 kg

DRUGS (11)
  1. OBINUTUZUMAB. [Suspect]
     Active Substance: OBINUTUZUMAB
     Dosage: LAST DOSE (0 MG) ADMINISTERED ON 01/OCT/2020
     Route: 042
  2. VENETOCLAX. [Suspect]
     Active Substance: VENETOCLAX
     Indication: CHRONIC LYMPHOCYTIC LEUKAEMIA
     Dosage: LAST DOSE ADMINISTERED ON: 18/DEC/2020 (TOTAL DOSE:7600 MG)
     Route: 048
     Dates: start: 20200513
  3. VENETOCLAX. [Suspect]
     Active Substance: VENETOCLAX
     Dosage: LAST DOSE ADMINISTERED ON: 18/DEC/2020 (TOTAL DOSE:7600 MG)
     Route: 048
  4. OBINUTUZUMAB. [Suspect]
     Active Substance: OBINUTUZUMAB
     Indication: CHRONIC LYMPHOCYTIC LEUKAEMIA
     Dosage: (CYCLE=28 DAYS)?LAST DOSE (0 MG) ADMINISTERED ON 01/OCT/2020 (COMPLETED HIS STUDY OBINUTUZUMAB INFUS
     Route: 042
     Dates: start: 20200513
  5. VENETOCLAX. [Suspect]
     Active Substance: VENETOCLAX
     Dosage: LAST DOSE ADMINISTERED ON: 18/DEC/2020 (TOTAL DOSE:7600 MG)
     Route: 048
  6. VENETOCLAX. [Suspect]
     Active Substance: VENETOCLAX
     Dosage: LAST DOSE ADMINISTERED ON: 18/DEC/2020 (TOTAL DOSE:7600 MG)
     Route: 048
  7. OBINUTUZUMAB. [Suspect]
     Active Substance: OBINUTUZUMAB
     Dosage: LAST DOSE (0 MG) ADMINISTERED ON 01/OCT/2020
     Route: 042
  8. IBRUTINIB [Suspect]
     Active Substance: IBRUTINIB
     Indication: CHRONIC LYMPHOCYTIC LEUKAEMIA
     Dosage: ON DAYS 1?28, CYCLES 1?19?TOTAL DOSE ADMINISTERED THIS COURSE (DOSE): 8820 MG  ?LAST ADMINISTERED DA
     Route: 048
     Dates: start: 20200513
  9. OBINUTUZUMAB. [Suspect]
     Active Substance: OBINUTUZUMAB
     Dosage: LAST DOSE (0 MG) ADMINISTERED ON 01/OCT/2020
     Route: 042
  10. OBINUTUZUMAB. [Suspect]
     Active Substance: OBINUTUZUMAB
     Dosage: LAST DOSE (0 MG) ADMINISTERED ON 01/OCT/2020
     Route: 042
  11. VENETOCLAX. [Suspect]
     Active Substance: VENETOCLAX
     Dosage: LAST DOSE ADMINISTERED ON: 18/DEC/2020 (TOTAL DOSE:7600 MG)
     Route: 048

REACTIONS (3)
  - Bacteraemia [Recovered/Resolved with Sequelae]
  - Pneumonia [Recovered/Resolved with Sequelae]
  - COVID-19 [Recovered/Resolved with Sequelae]

NARRATIVE: CASE EVENT DATE: 20201120
